FAERS Safety Report 9142167 (Version 1)
Quarter: 2013Q1

REPORT INFORMATION
  Report Type: Spontaneous
  Country: US (occurrence: US)
  Receive Date: 20130305
  Receipt Date: 20130305
  Transmission Date: 20140127
  Serious: No
  Sender: FDA-Public Use
  Company Number: US-AMGEN-USASP2013008190

PATIENT
  Age: 25 Year
  Sex: Male
  Weight: 86.08 kg

DRUGS (1)
  1. ENBREL [Suspect]
     Indication: PSORIATIC ARTHROPATHY
     Dosage: 50 MG, QWK
     Route: 058
     Dates: start: 20130204

REACTIONS (7)
  - Skin plaque [Not Recovered/Not Resolved]
  - Arthralgia [Not Recovered/Not Resolved]
  - Discomfort [Not Recovered/Not Resolved]
  - Mobility decreased [Not Recovered/Not Resolved]
  - Pain [Unknown]
  - Muscular weakness [Unknown]
  - Grip strength decreased [Unknown]
